FAERS Safety Report 4520659-8 (Version None)
Quarter: 2004Q4

REPORT INFORMATION
  Report Type: 
  Country: None (occurrence: None)
  Receive Date: 20041207
  Receipt Date: 20041201
  Transmission Date: 20050328
  Serious: Yes (Other)
  Sender: FDA-Public Use
  Company Number: GB-MERCK-0412GBR00014

PATIENT
  Age: 69 Year
  Sex: Male
  Weight: 65 kg

DRUGS (7)
  1. ZETIA [Suspect]
     Route: 048
     Dates: start: 20041103
  2. ATORVASTATIN CALCIUM [Concomitant]
     Route: 065
     Dates: start: 20040420
  3. ASPIRIN [Concomitant]
     Route: 065
     Dates: start: 19901213
  4. ACETAMINOPHEN AND PROPOXYPHENE HYDROCHLORIDE [Concomitant]
     Route: 065
     Dates: start: 19980409
  5. AMLODIPINE BESYLATE [Concomitant]
     Route: 065
     Dates: start: 19920924
  6. ATENOLOL [Concomitant]
     Route: 065
     Dates: start: 19920924
  7. GABAPENTIN [Concomitant]
     Route: 065
     Dates: start: 20020311

REACTIONS (2)
  - PAIN IN EXTREMITY [None]
  - SENSATION OF HEAVINESS [None]
